FAERS Safety Report 17172595 (Version 1)
Quarter: 2019Q4

REPORT INFORMATION
  Report Type: Spontaneous
  Country: IT (occurrence: IT)
  Receive Date: 20191218
  Receipt Date: 20191218
  Transmission Date: 20200122
  Serious: Yes (Death)
  Sender: FDA-Public Use
  Company Number: IT-MYLANLABS-2019M1124044

PATIENT
  Age: 69 Year
  Sex: Male

DRUGS (7)
  1. HUMAN NORMAL IMMUNOGLOBULIN [Concomitant]
     Active Substance: HUMAN IMMUNOGLOBULIN G
     Indication: SEIZURE
     Dosage: UNK
  2. PACLITAXEL. [Suspect]
     Active Substance: PACLITAXEL
     Indication: LIMBIC ENCEPHALITIS
     Dosage: UNK UNK, CYCLE
  3. RITUXIMAB. [Concomitant]
     Active Substance: RITUXIMAB
     Indication: LIMBIC ENCEPHALITIS
     Dosage: 375 MG/M2, WEEKLY
     Route: 042
  4. CARBAMAZEPINE. [Concomitant]
     Active Substance: CARBAMAZEPINE
     Indication: SEIZURE
     Dosage: UNK
  5. VEPESID [Suspect]
     Active Substance: ETOPOSIDE
     Indication: LIMBIC ENCEPHALITIS
     Dosage: UNK, EVERY 3 WEEKS (Q21)
  6. HUMAN NORMAL IMMUNOGLOBULIN [Concomitant]
     Active Substance: HUMAN IMMUNOGLOBULIN G
     Indication: LIMBIC ENCEPHALITIS
     Dosage: 0.4 KG, DAILY
     Route: 042
  7. CISPLATIN. [Suspect]
     Active Substance: CISPLATIN
     Indication: LIMBIC ENCEPHALITIS
     Dosage: UNK, EVERY 3 WEEKS (Q21)
     Route: 042

REACTIONS (2)
  - Cachexia [Fatal]
  - Neoplasm progression [Fatal]
